FAERS Safety Report 17868391 (Version 2)
Quarter: 2020Q3

REPORT INFORMATION
  Report Type: Spontaneous
  Country: FR (occurrence: FR)
  Receive Date: 20200606
  Receipt Date: 20200706
  Transmission Date: 20201103
  Serious: Yes (Hospitalization, Other)
  Sender: FDA-Public Use
  Company Number: FR-SUN PHARMACEUTICAL INDUSTRIES LTD-2020R1-249271

PATIENT
  Sex: Male
  Weight: 2.03 kg

DRUGS (14)
  1. PREDNISONE. [Suspect]
     Active Substance: PREDNISONE
     Indication: HODGKIN^S DISEASE
     Dosage: 40 MILLIGRAM, DAILY
     Route: 064
     Dates: end: 201711
  2. LANSOPRAZOLE. [Suspect]
     Active Substance: LANSOPRAZOLE
     Indication: PRODUCT USED FOR UNKNOWN INDICATION
     Dosage: 30 MILLIGRAM, DAILY
     Route: 064
  3. DACARBAZINE. [Suspect]
     Active Substance: DACARBAZINE
     Indication: HODGKIN^S DISEASE
     Dosage: 375MG/M2
     Route: 064
     Dates: start: 20171108
  4. VALACYCLOVIR [Suspect]
     Active Substance: VALACYCLOVIR HYDROCHLORIDE
     Indication: HODGKIN^S DISEASE
     Dosage: 500 MILLIGRAM, DAILY
     Route: 064
     Dates: start: 2017
  5. PREDNISONE. [Suspect]
     Active Substance: PREDNISONE
     Dosage: 80 MILLIGRAM, DAILY
     Route: 064
     Dates: end: 201711
  6. BLEOMYCIN [Suspect]
     Active Substance: BLEOMYCIN SULFATE
     Indication: HODGKIN^S DISEASE
     Dosage: 10MG/M2
     Route: 064
     Dates: start: 20171108
  7. AMOXICILLINE [Suspect]
     Active Substance: AMOXICILLIN
     Indication: ANTIBIOTIC THERAPY
     Dosage: UNK
     Route: 064
  8. DOXORUBICIN [Suspect]
     Active Substance: DOXORUBICIN
     Indication: HODGKIN^S DISEASE
     Dosage: 25MG/M2 (IN 20 ML OF GLUCOSE 5% ON DAY 1 AND DAY 15)
     Route: 064
     Dates: start: 20171108
  9. ONDANSETRON [Suspect]
     Active Substance: ONDANSETRON
     Indication: PROPHYLAXIS OF NAUSEA AND VOMITING
     Dosage: 8 MILLIGRAM, BID
     Route: 064
     Dates: start: 2017, end: 201711
  10. ENOXAPARIN SODIUM. [Suspect]
     Active Substance: ENOXAPARIN SODIUM
     Indication: HODGKIN^S DISEASE
     Dosage: 4000 UNITS, BID
     Route: 064
     Dates: start: 2017
  11. GLUCOSE [Suspect]
     Active Substance: DEXTROSE
     Indication: PRODUCT USED FOR UNKNOWN INDICATION
     Dosage: 20 ML (USED AS A VEHICLE FOR DOXORUBICIN DRUG
     Route: 064
     Dates: start: 20171108
  12. VINBLASTINE [Suspect]
     Active Substance: VINBLASTINE
     Indication: HODGKIN^S DISEASE
     Dosage: 6MG/M2
     Route: 064
     Dates: start: 20171108
  13. SODIUM CHLORIDE. [Suspect]
     Active Substance: SODIUM CHLORIDE
     Indication: PRODUCT USED FOR UNKNOWN INDICATION
     Dosage: 20 ML (USED AS A VEHICLE FOR BLEOMYCIN DRUG
     Route: 064
     Dates: start: 20171108
  14. DEXAMETHASONE. [Suspect]
     Active Substance: DEXAMETHASONE
     Indication: HODGKIN^S DISEASE
     Dosage: 10MG
     Route: 064

REACTIONS (3)
  - Cardiac dysfunction [Recovered/Resolved]
  - Foetal exposure during pregnancy [Recovered/Resolved]
  - Premature baby [Unknown]

NARRATIVE: CASE EVENT DATE: 2017
